FAERS Safety Report 6538742-4 (Version None)
Quarter: 2010Q1

REPORT INFORMATION
  Report Type: 
  Country: None (occurrence: None)
  Receive Date: 20100115
  Receipt Date: 20100105
  Transmission Date: 20100710
  Serious: Yes (Other)
  Sender: FDA-Public Use
  Company Number: GB-RANBAXY-2010RR-30333

PATIENT
  Age: 67 Year
  Sex: Female

DRUGS (1)
  1. FLECAINIDE ACETATE [Suspect]
     Dosage: 100 MG, BID
     Route: 048

REACTIONS (1)
  - HYPONATRAEMIA [None]
